FAERS Safety Report 23701625 (Version 2)
Quarter: 2024Q2

REPORT INFORMATION
  Report Type: Spontaneous
  Country: RO (occurrence: RO)
  Receive Date: 20240403
  Receipt Date: 20240429
  Transmission Date: 20240716
  Serious: Yes (Hospitalization, Other)
  Sender: FDA-Public Use
  Company Number: None

PATIENT
  Age: 27 Year
  Sex: Female

DRUGS (6)
  1. CYCLOPHOSPHAMIDE [Suspect]
     Active Substance: CYCLOPHOSPHAMIDE
     Indication: Antiphospholipid syndrome
     Route: 042
  2. CYCLOPHOSPHAMIDE [Suspect]
     Active Substance: CYCLOPHOSPHAMIDE
     Indication: Systemic lupus erythematosus
     Route: 042
  3. ALPROSTADIL [Suspect]
     Active Substance: ALPROSTADIL
     Indication: Systemic lupus erythematosus
     Dosage: 2 MCG/KG/MIN
     Route: 042
  4. ALPROSTADIL [Suspect]
     Active Substance: ALPROSTADIL
     Indication: Antiphospholipid syndrome
  5. METHYLPREDNISOLONE [Suspect]
     Active Substance: METHYLPREDNISOLONE
     Indication: Antiphospholipid syndrome
     Dosage: 2 MCG/KG/MIN?METHYLPREDNISOLONE WAS CONTINUED IN A DOSAGE OF 0.5 MG/KG AFTER PLASMAPHERESIS AND AFTE
     Route: 042
  6. METHYLPREDNISOLONE [Suspect]
     Active Substance: METHYLPREDNISOLONE
     Indication: Systemic lupus erythematosus

REACTIONS (4)
  - Drug ineffective for unapproved indication [Unknown]
  - Headache [Unknown]
  - Dizziness [Unknown]
  - Nausea [Unknown]
